FAERS Safety Report 16548908 (Version 2)
Quarter: 2020Q3

REPORT INFORMATION
  Report Type: Spontaneous
  Country: US (occurrence: US)
  Receive Date: 20190709
  Receipt Date: 20200910
  Transmission Date: 20201102
  Serious: No
  Sender: FDA-Public Use
  Company Number: US-TEVA-2019-US-1066395

PATIENT
  Age: 74 Year
  Sex: Male

DRUGS (1)
  1. ATENOLOL TABLET [Suspect]
     Active Substance: ATENOLOL
     Indication: BLOOD PRESSURE INCREASED
     Route: 065
     Dates: start: 2009

REACTIONS (2)
  - Blood pressure increased [Recovered/Resolved]
  - Paraesthesia [Recovering/Resolving]

NARRATIVE: CASE EVENT DATE: 201904
